FAERS Safety Report 5039994-2 (Version None)
Quarter: 2006Q2

REPORT INFORMATION
  Report Type: 
  Country: None (occurrence: None)
  Receive Date: 20060630
  Receipt Date: 20060523
  Transmission Date: 20061013
  Serious: Yes (Death, Life-Threatening, Hospitalization, Disabling)
  Sender: FDA-Public Use
  Company Number: US-NOVOPROD-253554

PATIENT
  Age: 38 Year
  Sex: Female
  Weight: 77 kg

DRUGS (5)
  1. NOVOSEVEN [Suspect]
     Indication: CEREBRAL HAEMORRHAGE
     Dosage: 1 DOSE
     Route: 042
     Dates: start: 20060514, end: 20060514
  2. NORVASC                            /00972401/ [Concomitant]
     Dosage: UNK, UNK
     Route: 048
  3. PRINIVIL [Concomitant]
     Route: 048
  4. CHLORHEXIDINE GLUCONATE [Concomitant]
     Indication: DENTAL DISORDER PROPHYLAXIS
     Dates: start: 20060516, end: 20060525
  5. THIOPENTAL SODIUM [Concomitant]
     Dates: start: 20060518, end: 20060518

REACTIONS (5)
  - BLOOD PRESSURE INCREASED [None]
  - BRAIN HERNIATION [None]
  - BRAIN OEDEMA [None]
  - CEREBRAL HAEMORRHAGE [None]
  - LOSS OF CONSCIOUSNESS [None]
